FAERS Safety Report 7427818-5 (Version None)
Quarter: 2011Q2

REPORT INFORMATION
  Report Type: 
  Country: None (occurrence: None)
  Receive Date: 20110421
  Receipt Date: 20101108
  Transmission Date: 20111010
  Serious: Yes (Hospitalization, Other)
  Sender: FDA-Public Use
  Company Number: US-BAYER-200934014NA

PATIENT
  Age: 29 Year
  Sex: Female
  Weight: 81 kg

DRUGS (16)
  1. YAZ [Suspect]
     Indication: PREMENSTRUAL SYNDROME
  2. YASMIN [Suspect]
  3. TENORMIN [Concomitant]
     Dosage: 50 MG, TID
     Route: 048
     Dates: start: 20070801
  4. YASMIN [Suspect]
     Indication: ORAL CONTRACEPTION
     Dosage: 1 DF (DAILY DOSE), ,
     Dates: start: 20070301, end: 20070801
  5. LEXAPRO [Concomitant]
     Indication: ANXIETY
     Dosage: 20 MG, QD
     Route: 048
     Dates: start: 20040101, end: 20090101
  6. IBUPROFEN [Concomitant]
  7. YAZ [Suspect]
     Indication: ORAL CONTRACEPTION
     Dosage: UNK
     Dates: start: 20070327, end: 20070831
  8. CELEXA [Concomitant]
     Indication: ANXIETY
     Dosage: UNK
     Route: 048
     Dates: start: 20091101
  9. YASMIN [Suspect]
     Indication: PREMENSTRUAL SYNDROME
  10. LEXAPRO [Concomitant]
     Indication: DEPRESSION
  11. CELEXA [Concomitant]
     Indication: DEPRESSION
  12. PRILOSEC [Concomitant]
     Dosage: UNK UNK, QD
     Route: 048
     Dates: start: 20070801
  13. ASPIRIN [Concomitant]
     Dosage: 81 MG, QD
  14. XANAX [Concomitant]
     Indication: ANXIETY
     Route: 048
  15. YAZ [Suspect]
  16. NEXIUM [Concomitant]
     Dosage: 10 MG, UNK
     Dates: start: 20070301

REACTIONS (2)
  - DEEP VEIN THROMBOSIS [None]
  - PULMONARY EMBOLISM [None]
